FAERS Safety Report 9705803 (Version 2)
Quarter: 2013Q4

REPORT INFORMATION
  Report Type: Spontaneous
  Country: US (occurrence: US)
  Receive Date: 20131122
  Receipt Date: 20131122
  Transmission Date: 20140711
  Serious: No
  Sender: FDA-Public Use
  Company Number: US-GILEAD-2008-0017606

PATIENT
  Age: 79 Year
  Sex: Male
  Weight: 78.92 kg

DRUGS (8)
  1. LETAIRIS [Suspect]
     Indication: PULMONARY ARTERIAL HYPERTENSION
     Route: 048
     Dates: start: 200806
  2. REVATIO [Concomitant]
     Indication: PULMONARY ARTERIAL HYPERTENSION
     Dates: start: 20070215
  3. ALBUTEROL [Concomitant]
     Route: 055
  4. OMEPRAZOLE [Concomitant]
     Indication: GASTROOESOPHAGEAL REFLUX DISEASE
     Route: 048
     Dates: start: 20061221
  5. PREDNISONE [Concomitant]
  6. NAMENDA [Concomitant]
     Indication: DEMENTIA
     Route: 048
     Dates: start: 20061221
  7. ARICEPT [Concomitant]
     Indication: DEMENTIA
     Route: 048
     Dates: start: 20061221
  8. ZOLOFT [Concomitant]
     Indication: DEPRESSION
     Route: 048
     Dates: start: 20061221

REACTIONS (1)
  - Oedema peripheral [Recovered/Resolved]
